FAERS Safety Report 6878253-X (Version None)
Quarter: 2010Q3

REPORT INFORMATION
  Report Type: 
  Country: None (occurrence: None)
  Receive Date: 20100728
  Receipt Date: 20100716
  Transmission Date: 20110219
  Serious: Yes (Hospitalization)
  Sender: FDA-Public Use
  Company Number: IT-PFIZER INC-2010089729

PATIENT
  Age: 61 Year
  Sex: Female

DRUGS (7)
  1. TORVAST [Suspect]
     Indication: HYPERCHOLESTEROLAEMIA
     Dosage: 80 MG, 1X/DAY
     Route: 048
     Dates: start: 20100614, end: 20100712
  2. ACETYLSALICYLIC ACID [Concomitant]
     Dosage: UNK
  3. CLOPIDOGREL [Concomitant]
     Dosage: UNK
  4. RAMIPRIL [Concomitant]
     Dosage: UNK
  5. BISOPROLOL FUMARATE [Concomitant]
     Dosage: UNK
  6. GLYCERYL TRINITRATE [Concomitant]
     Dosage: UNK
  7. ALPRAZOLAM [Concomitant]
     Dosage: UNK

REACTIONS (2)
  - HEPATITIS CHOLESTATIC [None]
  - RHABDOMYOLYSIS [None]
